FAERS Safety Report 10224885 (Version 1)
Quarter: 2014Q2

REPORT INFORMATION
  Report Type: Spontaneous
  Country: CN (occurrence: CN)
  Receive Date: 20140609
  Receipt Date: 20140609
  Transmission Date: 20141212
  Serious: Yes (Other)
  Sender: FDA-Public Use
  Company Number: CN-GLAXOSMITHKLINE-B1001200A

PATIENT
  Age: 71 Year
  Sex: Female
  Weight: 51 kg

DRUGS (1)
  1. FONDAPARINUX SODIUM [Suspect]
     Indication: COAGULOPATHY
     Dosage: 2.5MG PER DAY
     Route: 058
     Dates: start: 20130619, end: 20130718

REACTIONS (1)
  - Haematuria [Recovering/Resolving]
